FAERS Safety Report 9227100 (Version 1)
Quarter: 2013Q2

REPORT INFORMATION
  Report Type: Spontaneous
  Country: IT (occurrence: IT)
  Receive Date: 20130412
  Receipt Date: 20130412
  Transmission Date: 20140414
  Serious: Yes (Death)
  Sender: FDA-Public Use
  Company Number: IT-UCBSA-082708

PATIENT
  Age: 38 Year
  Sex: Female

DRUGS (3)
  1. LEVETIRACETAM [Suspect]
     Indication: CONVULSION
     Dosage: DAILY DOSE-3000 MG
  2. PREGABALIN [Suspect]
     Indication: CONVULSION
     Dosage: DAILY DOSE-225 MG/DAY
  3. FOTEMUSTINE [Concomitant]
     Indication: CONVULSION

REACTIONS (1)
  - Death [Fatal]
